FAERS Safety Report 4442179-1 (Version None)
Quarter: 2004Q3

REPORT INFORMATION
  Report Type: 
  Country: None (occurrence: None)
  Receive Date: 20040903
  Receipt Date: 20040726
  Transmission Date: 20050211
  Serious: Yes (Other)
  Sender: FDA-Public Use
  Company Number: 2004UW15719

PATIENT
  Age: 51 Year
  Sex: Female
  Weight: 54.4316 kg

DRUGS (4)
  1. CRESTOR [Suspect]
     Indication: BLOOD CHOLESTEROL INCREASED
     Dosage: 10 MG
  2. QUESTRAN [Concomitant]
  3. PERCOCET [Concomitant]
  4. OXYCONTIN [Concomitant]

REACTIONS (7)
  - ABDOMINAL DISTENSION [None]
  - CONSTIPATION [None]
  - DENTAL CARIES [None]
  - GASTRIC MUCOSAL LESION [None]
  - GASTRITIS [None]
  - GINGIVAL DISORDER [None]
  - TOOTH DISORDER [None]
